FAERS Safety Report 8823914 (Version 1)
Quarter: 2012Q4

REPORT INFORMATION
  Report Type: 
  Country: AU (occurrence: AU)
  Receive Date: 20121003
  Receipt Date: 20121003
  Transmission Date: 20130627
  Serious: Yes (Congenital Anomaly, Other)
  Sender: FDA-Public Use
  Company Number: PHHY2012AU085645

PATIENT

DRUGS (1)
  1. TEGRETOL [Suspect]
     Indication: EPILEPSY
     Dosage: 1200 mg, daily
     Route: 064

REACTIONS (3)
  - Hydrocephalus [Unknown]
  - Spina bifida [Unknown]
  - Foetal exposure during pregnancy [Unknown]
